FAERS Safety Report 6279283-1 (Version None)
Quarter: 2009Q3

REPORT INFORMATION
  Report Type: 
  Country: None (occurrence: None)
  Receive Date: 20090723
  Receipt Date: 20081124
  Transmission Date: 20100115
  Serious: Yes (Hospitalization)
  Sender: FDA-Public Use
  Company Number: US-AMGEN-KDL310222

PATIENT
  Sex: Female
  Weight: 75.4 kg

DRUGS (1)
  1. EPOGEN [Suspect]
     Indication: ANAEMIA
     Route: 058
     Dates: start: 20080501, end: 20080715

REACTIONS (1)
  - CONVULSION [None]
